FAERS Safety Report 12254009 (Version 1)
Quarter: 2016Q2

REPORT INFORMATION
  Report Type: Report from Study
  Country: CZ (occurrence: CZ)
  Receive Date: 20160411
  Receipt Date: 20160411
  Transmission Date: 20160815
  Serious: Yes (Hospitalization)
  Sender: FDA-Public Use
  Company Number: CZ-BIOGEN-2016BI00209389

PATIENT
  Age: 40 Year
  Sex: Female
  Weight: 58 kg

DRUGS (12)
  1. MONTEAL (NOS) [Concomitant]
     Indication: HYPERSENSITIVITY
     Route: 048
  2. NEUROL (ACTIVE SUBSTANCE: ALPRAZOLAM) [Concomitant]
     Indication: DECREASED APPETITE
  3. TRITTICO AC 75 (ACTIVE SUBSTANCE: TRAZODONE HYDROCHLORIDE) [Concomitant]
     Indication: DECREASED APPETITE
  4. XYZAL (ACTIVE SUBSTANCE: LEVOCETIRIZINE HYDROCHLORIDE) [Concomitant]
     Indication: HYPERSENSITIVITY
     Route: 048
  5. TYSABRI [Suspect]
     Active Substance: NATALIZUMAB
     Route: 042
     Dates: start: 201401, end: 20160308
  6. TRITTICO AC 75 (ACTIVE SUBSTANCE: TRAZODONE HYDROCHLORIDE) [Concomitant]
     Indication: DEPRESSION
     Dosage: 1 TABLET AT NIGHT
     Route: 048
  7. MINESSE (ACTIVE SUBSTANCES: ETHINYLESTRADIOL 0.015 MG , GESTODENE 0.06 [Concomitant]
     Indication: ENDOMETRIOSIS
     Dosage: GESTODENE
     Route: 048
  8. MINESSE (ACTIVE SUBSTANCES: ETHINYLESTRADIOL 0.015 MG , GESTODENE 0.06 [Concomitant]
     Indication: CONTRACEPTION
     Dosage: ETHINYLESTRADIOL
     Route: 048
  9. TYSABRI [Suspect]
     Active Substance: NATALIZUMAB
     Indication: MULTIPLE SCLEROSIS
     Route: 042
     Dates: start: 20130514, end: 201309
  10. NEUROL (ACTIVE SUBSTANCE: ALPRAZOLAM) [Concomitant]
     Indication: DEPRESSION
     Route: 048
  11. IBALGIN (ACTIVE SUBSTANCE: IBUPROFEN) [Concomitant]
     Indication: HEADACHE
     Route: 048
  12. MONTEAL (NOS) [Concomitant]
     Indication: ASTHMA

REACTIONS (3)
  - Otitis externa [Unknown]
  - Urinary tract infection [Unknown]
  - Multiple sclerosis relapse [Recovered/Resolved with Sequelae]

NARRATIVE: CASE EVENT DATE: 201603
